FAERS Safety Report 5230329-9 (Version None)
Quarter: 2007Q1

REPORT INFORMATION
  Report Type: 
  Country: None (occurrence: None)
  Receive Date: 20070206
  Receipt Date: 20070125
  Transmission Date: 20070707
  Serious: Yes (Other)
  Sender: FDA-Public Use
  Company Number: US-PFIZER INC-2007007362

PATIENT
  Sex: Female
  Weight: 81.6 kg

DRUGS (5)
  1. CHANTIX [Suspect]
     Indication: SMOKING CESSATION THERAPY
  2. LIPITOR [Suspect]
     Indication: BLOOD CHOLESTEROL INCREASED
  3. ATENOLOL [Concomitant]
     Indication: HYPERTENSION
  4. PAXIL [Concomitant]
  5. ZETIA [Concomitant]
     Indication: BLOOD CHOLESTEROL

REACTIONS (5)
  - ANGIOEDEMA [None]
  - CYANOSIS [None]
  - ISCHAEMIA [None]
  - OEDEMA [None]
  - URTICARIA [None]
